FAERS Safety Report 24837895 (Version 1)
Quarter: 2025Q1

REPORT INFORMATION
  Report Type: Spontaneous
  Country: BR (occurrence: BR)
  Receive Date: 20250113
  Receipt Date: 20250113
  Transmission Date: 20250409
  Serious: Yes (Death, Other)
  Sender: SANDOZ
  Company Number: BR-SANDOZ-SDZ2025BR001597

PATIENT

DRUGS (1)
  1. ZOLPIDEM [Suspect]
     Active Substance: ZOLPIDEM TARTRATE
     Indication: Product used for unknown indication
     Dosage: 90 MG, QD
     Route: 064

REACTIONS (2)
  - Stillbirth [Fatal]
  - Foetal exposure during pregnancy [Fatal]
